FAERS Safety Report 21613214 (Version 1)
Quarter: 2022Q4

REPORT INFORMATION
  Report Type: Report from Study
  Country: BR (occurrence: BR)
  Receive Date: 20221118
  Receipt Date: 20221118
  Transmission Date: 20230112
  Serious: Yes (Other)
  Sender: FDA-Public Use
  Company Number: BR-CELLTRION INC.-2022BR014920

PATIENT

DRUGS (4)
  1. INFLIXIMAB [Suspect]
     Active Substance: INFLIXIMAB
     Indication: Ankylosing spondylitis
     Dosage: 3 AMPOLES EVERY 8 WEEKS
     Route: 042
     Dates: start: 2019
  2. INFLIXIMAB [Suspect]
     Active Substance: INFLIXIMAB
     Dosage: 3 AMPOLES EVERY 8 WEEKS
     Route: 042
     Dates: start: 20220923
  3. SULFASALAZINE [Concomitant]
     Active Substance: SULFASALAZINE
  4. FOLIC ACID [Concomitant]
     Active Substance: FOLIC ACID

REACTIONS (7)
  - Pain [Not Recovered/Not Resolved]
  - Arthralgia [Not Recovered/Not Resolved]
  - Arthralgia [Not Recovered/Not Resolved]
  - Diarrhoea [Unknown]
  - Product substitution issue [Unknown]
  - Intentional dose omission [Unknown]
  - Treatment delayed [Unknown]
